FAERS Safety Report 15027502 (Version 2)
Quarter: 2025Q1

REPORT INFORMATION
  Report Type: Spontaneous
  Country: US (occurrence: US)
  Receive Date: 20180619
  Receipt Date: 20250325
  Transmission Date: 20250408
  Serious: Yes (Life-Threatening, Other)
  Sender: CIPLA
  Company Number: US-MLMSERVICE-20180601-1211991-1

PATIENT

DRUGS (3)
  1. GABAPENTIN [Suspect]
     Active Substance: GABAPENTIN
     Indication: Procedural pain
     Dosage: 600 MILLIGRAM, TID EVERY 8 HOURS
     Route: 065
  2. GABAPENTIN [Suspect]
     Active Substance: GABAPENTIN
     Dosage: 800 MILLIGRAM, TID EVERY 8 HOURS
     Route: 065
  3. VANCOMYCIN [Concomitant]
     Active Substance: VANCOMYCIN
     Indication: Abscess
     Route: 065

REACTIONS (3)
  - Toxicity to various agents [Unknown]
  - Respiratory depression [Recovered/Resolved]
  - Encephalopathy [Recovered/Resolved]
